FAERS Safety Report 7554160-4 (Version None)
Quarter: 2011Q2

REPORT INFORMATION
  Report Type: 
  Country: None (occurrence: None)
  Receive Date: 20110617
  Receipt Date: 20110607
  Transmission Date: 20111010
  Serious: Yes (Hospitalization)
  Sender: FDA-Public Use
  Company Number: JP-CELGENEUS-087-50794-11061135

PATIENT

DRUGS (1)
  1. VIDAZA [Suspect]
     Dosage: 75 MILLIGRAM
     Route: 051
     Dates: start: 20110516, end: 20110519

REACTIONS (3)
  - ILEUS PARALYTIC [None]
  - CONSTIPATION [None]
  - DYSURIA [None]
